FAERS Safety Report 8977554 (Version 2)
Quarter: 2012Q4

REPORT INFORMATION
  Report Type: 
  Country: IT (occurrence: IT)
  Receive Date: 20121220
  Receipt Date: 20121221
  Transmission Date: 20130627
  Serious: Yes (Other)
  Sender: FDA-Public Use
  Company Number: IT-GLAXOSMITHKLINE-B0853600A

PATIENT
  Age: 71 Year
  Sex: Female

DRUGS (1)
  1. ARZERRA [Suspect]
     Indication: CHRONIC LYMPHOCYTIC LEUKAEMIA
     Route: 065
     Dates: start: 20121207, end: 20121214

REACTIONS (2)
  - Laryngeal oedema [Recovered/Resolved]
  - Oxygen saturation decreased [Recovered/Resolved]
